FAERS Safety Report 6827574-5 (Version None)
Quarter: 2010Q3

REPORT INFORMATION
  Report Type: 
  Country: None (occurrence: None)
  Receive Date: 20100709
  Receipt Date: 20070122
  Transmission Date: 20110219
  Serious: Yes (Other)
  Sender: FDA-Public Use
  Company Number: US-PFIZER INC-2007006383

PATIENT
  Sex: Male
  Weight: 86.2 kg

DRUGS (1)
  1. CHANTIX [Suspect]
     Indication: EX-TOBACCO USER
     Dosage: DAILY
     Route: 048
     Dates: start: 20070101

REACTIONS (4)
  - DEPRESSION [None]
  - FEELING ABNORMAL [None]
  - NAUSEA [None]
  - SUICIDAL IDEATION [None]
